FAERS Safety Report 10191009 (Version 3)
Quarter: 2014Q2

REPORT INFORMATION
  Report Type: Spontaneous
  Country: US (occurrence: US)
  Receive Date: 20140523
  Receipt Date: 20140623
  Transmission Date: 20141212
  Serious: Yes (Hospitalization, Other)
  Sender: FDA-Public Use
  Company Number: US-DENDREON CORPORATION-2014PROUSA03731

PATIENT
  Age: 64 Year
  Sex: Male
  Weight: 71.66 kg

DRUGS (17)
  1. PROVENGE [Suspect]
     Indication: PROSTATE CANCER METASTATIC
     Dosage: 250 ML, SINGLE
     Route: 042
     Dates: start: 20140407, end: 20140407
  2. PROVENGE [Suspect]
     Dosage: 250 ML, SINGLE
     Route: 042
     Dates: start: 20140505, end: 20140505
  3. LOVENOX [Concomitant]
     Indication: ANTICOAGULANT THERAPY
     Dosage: 80 MG, BID
     Route: 058
  4. LOVENOX [Concomitant]
     Indication: DEEP VEIN THROMBOSIS
  5. VITAMIN D3 [Concomitant]
     Indication: PRODUCT USED FOR UNKNOWN INDICATION
     Dosage: 2000 IU, QD
  6. VITAMIN B12 [Concomitant]
     Indication: PRODUCT USED FOR UNKNOWN INDICATION
     Dosage: 1000 MCG, UNK
  7. LUPRON [Concomitant]
     Indication: PROSTATE CANCER
     Dosage: 22.5 MG, EVERY 3 MONTHS
     Route: 030
  8. TYLENOL [Concomitant]
     Indication: PAIN
     Dosage: 650 MG, Q 4 HOURS PRN
     Route: 048
  9. BISACODYL [Concomitant]
     Indication: LAXATIVE SUPPORTIVE CARE
     Dosage: 10 MG, PRN
     Route: 054
  10. CALTRATE [Concomitant]
     Indication: PRODUCT USED FOR UNKNOWN INDICATION
     Dosage: 1200 MG, QD
     Route: 048
  11. IBUPROFEN [Concomitant]
     Indication: PAIN
     Dosage: 400 MG, Q 6HR PRN
     Route: 048
  12. SENOKOT-S [Concomitant]
     Indication: PRODUCT USED FOR UNKNOWN INDICATION
     Dosage: 2 DF, HS
     Route: 048
  13. SENOKOT-S [Concomitant]
     Dosage: 3 DF, QAM
     Route: 048
  14. THERAGRAN-M [Concomitant]
     Indication: PRODUCT USED FOR UNKNOWN INDICATION
     Dosage: 1 TABLETS, QD
     Route: 048
  15. TRAMADOL [Concomitant]
     Indication: PRODUCT USED FOR UNKNOWN INDICATION
     Dosage: 100 MG, BID
     Route: 048
  16. CELEXA [Concomitant]
     Indication: PRODUCT USED FOR UNKNOWN INDICATION
     Dosage: 10 MG, QD
     Route: 048
  17. COMPAZINE [Concomitant]
     Indication: NAUSEA
     Dosage: 1 TABLETS,  Q 6HR PRN
     Route: 048

REACTIONS (9)
  - Fall [Recovered/Resolved]
  - Hypotension [Recovered/Resolved]
  - Laceration [Not Recovered/Not Resolved]
  - Skin abrasion [Not Recovered/Not Resolved]
  - Contusion [Not Recovered/Not Resolved]
  - Anaemia [Recovering/Resolving]
  - Prostatic specific antigen increased [Not Recovered/Not Resolved]
  - Decreased appetite [Unknown]
  - Weight decreased [Unknown]
